FAERS Safety Report 21959257 (Version 1)
Quarter: 2023Q1

REPORT INFORMATION
  Report Type: Spontaneous
  Country: BR (occurrence: BR)
  Receive Date: 20230206
  Receipt Date: 20230206
  Transmission Date: 20230418
  Serious: Yes (Death, Hospitalization)
  Sender: FDA-Public Use
  Company Number: BR-PFIZER INC-PV202300020302

PATIENT
  Age: 57 Year
  Sex: Male

DRUGS (6)
  1. METHYLPREDNISOLONE ACETATE [Suspect]
     Active Substance: METHYLPREDNISOLONE ACETATE
     Indication: Pemphigus
     Dosage: 80 MG, DAILY
     Dates: start: 202003
  2. MYCOPHENOLATE MOFETIL [Suspect]
     Active Substance: MYCOPHENOLATE MOFETIL
     Indication: Pemphigus
     Dosage: 3 G, DAILY
     Dates: start: 202003
  3. PREDNISONE [Suspect]
     Active Substance: PREDNISONE
     Indication: Pemphigus
     Dosage: 80 MG, DAILY
     Dates: start: 202004
  4. OXACILLIN [Concomitant]
     Active Substance: OXACILLIN SODIUM
     Indication: Pemphigus
     Dosage: 1 G 4/4 H
     Dates: start: 202003
  5. ACYCLOVIR [Concomitant]
     Active Substance: ACYCLOVIR
     Indication: Eczema herpeticum
     Dosage: 5 MG/KG/DOSE
     Route: 042
     Dates: start: 202003
  6. OSELTAMIVIR [Concomitant]
     Active Substance: OSELTAMIVIR
     Dosage: 75 MG, 2X/DAY

REACTIONS (1)
  - COVID-19 [Fatal]

NARRATIVE: CASE EVENT DATE: 20200501
